FAERS Safety Report 25110115 (Version 1)
Quarter: 2025Q1

REPORT INFORMATION
  Report Type: Spontaneous
  Country: DE (occurrence: DE)
  Receive Date: 20250324
  Receipt Date: 20250324
  Transmission Date: 20250409
  Serious: Yes (Congenital Anomaly, Other)
  Sender: CHEPLAPHARM
  Company Number: None

PATIENT
  Sex: Female
  Weight: 3.3499 kg

DRUGS (8)
  1. OLANZAPINE [Suspect]
     Active Substance: OLANZAPINE
     Indication: Acute psychosis
     Dosage: DAILY DOSE: 7.5 MILLIGRAM
     Route: 064
     Dates: start: 202306, end: 202309
  2. OLANZAPINE [Suspect]
     Active Substance: OLANZAPINE
     Indication: Acute psychosis
     Dosage: DAILY DOSE: 5 MILLIGRAM
     Route: 064
     Dates: start: 202309, end: 202310
  3. OLANZAPINE [Suspect]
     Active Substance: OLANZAPINE
     Indication: Acute psychosis
     Dosage: DAILY DOSE: 2.5 MILLIGRAM
     Route: 064
     Dates: start: 202310, end: 202402
  4. ABILIFY [Suspect]
     Active Substance: ARIPIPRAZOLE
     Indication: Acute psychosis
     Dosage: DAILY DOSE: 10 MILLIGRAM
     Route: 064
     Dates: start: 202306, end: 202308
  5. ABILIFY [Suspect]
     Active Substance: ARIPIPRAZOLE
     Indication: Acute psychosis
     Dosage: DAILY DOSE: 7.5 MILLIGRAM
     Route: 064
     Dates: start: 202308, end: 202402
  6. ABILIFY [Suspect]
     Active Substance: ARIPIPRAZOLE
     Indication: Acute psychosis
     Dosage: DAILY DOSE: 10 MILLIGRAM
     Route: 064
     Dates: start: 202402, end: 202403
  7. ABILIFY [Suspect]
     Active Substance: ARIPIPRAZOLE
     Indication: Acute psychosis
     Dosage: DAILY DOSE: 15 MILLIGRAM
     Route: 064
     Dates: start: 202403, end: 202403
  8. ABILIFY [Suspect]
     Active Substance: ARIPIPRAZOLE
     Indication: Acute psychosis
     Dosage: DAILY DOSE: 20 MILLIGRAM
     Route: 064
     Dates: start: 202403, end: 202403

REACTIONS (4)
  - Polydactyly [Recovered/Resolved]
  - Patent ductus arteriosus [Recovered/Resolved]
  - Pulmonary valve stenosis [Unknown]
  - Foetal exposure during pregnancy [Unknown]

NARRATIVE: CASE EVENT DATE: 20240401
